FAERS Safety Report 7398090-X (Version None)
Quarter: 2011Q2

REPORT INFORMATION
  Report Type: 
  Country: None (occurrence: None)
  Receive Date: 20110406
  Receipt Date: 20110328
  Transmission Date: 20111010
  Serious: Yes (Life-Threatening, Hospitalization)
  Sender: FDA-Public Use
  Company Number: FR-AMGEN-FRASP2011016318

PATIENT
  Age: 84 Year
  Sex: Male

DRUGS (6)
  1. MEDROL [Suspect]
     Indication: PRODUCT USED FOR UNKNOWN INDICATION
     Dosage: 100 MG, QWK
     Route: 048
     Dates: start: 20100921
  2. ARANESP [Suspect]
     Indication: PRODUCT USED FOR UNKNOWN INDICATION
     Dosage: 150 A?G, QWK
     Route: 058
     Dates: start: 20101215
  3. REVLIMID [Suspect]
     Indication: MULTIPLE MYELOMA
     Dosage: 10 MG, UNK
     Dates: start: 20100921, end: 20110103
  4. ASPEGIC 325 [Concomitant]
     Dosage: 100 MG, UNK
     Route: 048
  5. DI-ANTALVIC                        /00016701/ [Concomitant]
     Route: 048
  6. CLASTOBAN [Concomitant]
     Dosage: 800 MG, UNK
     Route: 048

REACTIONS (1)
  - ACUTE CORONARY SYNDROME [None]
